FAERS Safety Report 17991962 (Version 1)
Quarter: 2020Q3

REPORT INFORMATION
  Report Type: Spontaneous
  Country: US (occurrence: US)
  Receive Date: 20200707
  Receipt Date: 20200707
  Transmission Date: 20201103
  Serious: Yes (Death, Other)
  Sender: FDA-Public Use
  Company Number: US-MALLINCKRODT-T202003175

PATIENT
  Age: 12 Day
  Sex: Male
  Weight: 3 kg

DRUGS (5)
  1. DOBUTAMINE [Suspect]
     Active Substance: DOBUTAMINE HYDROCHLORIDE
     Indication: PULMONARY CAPILLARY HAEMANGIOMATOSIS
     Dosage: UNK
     Route: 065
  2. INOMAX [Suspect]
     Active Substance: NITRIC OXIDE
     Indication: PULMONARY CAPILLARY HAEMANGIOMATOSIS
     Dosage: UNK, INHALATION
     Route: 055
  3. OXYGEN. [Concomitant]
     Active Substance: OXYGEN
     Indication: OXYGEN THERAPY
     Dosage: UNK
     Route: 065
  4. PHENOBARBITAL. [Concomitant]
     Active Substance: PHENOBARBITAL
     Indication: SEIZURE
     Dosage: UNK
     Route: 065
  5. MILRINONE [Suspect]
     Active Substance: MILRINONE
     Indication: PULMONARY CAPILLARY HAEMANGIOMATOSIS
     Dosage: UNK
     Route: 065

REACTIONS (3)
  - Metabolic acidosis [Unknown]
  - Respiratory syncytial virus bronchiolitis [Unknown]
  - Death [Fatal]
